FAERS Safety Report 16139969 (Version 1)
Quarter: 2019Q1

REPORT INFORMATION
  Report Type: Spontaneous
  Country: JP (occurrence: JP)
  Receive Date: 20190331
  Receipt Date: 20190331
  Transmission Date: 20190418
  Serious: Yes (Hospitalization, Other)
  Sender: FDA-Public Use
  Company Number: JP-AMGEN-JPNSP2019050770

PATIENT
  Age: 69 Year
  Sex: Male
  Weight: 57 kg

DRUGS (15)
  1. ZINC OXIDE SIMPLE OINTMENT [Concomitant]
     Active Substance: ZINC OXIDE
     Dosage: 1 DOSAGE FORM, AS DIRECTED
     Route: 065
     Dates: start: 20190111
  2. OLIVE OIL [Concomitant]
     Active Substance: OLIVE OIL
     Dosage: 500 MILLILITER, QD, AS NEEDED
     Route: 050
     Dates: start: 20190110
  3. SP [DEQUALINIUM CHLORIDE] [Concomitant]
     Dosage: 1 DOSAGE FORM, 6 TMS EVERY 1D, AS NEEDED
     Route: 050
     Dates: start: 20190111
  4. LEUCOVORIN [FOLINIC ACID] [Concomitant]
     Active Substance: LEUCOVORIN
     Dosage: UNK
  5. RANMARK [Suspect]
     Active Substance: DENOSUMAB
     Indication: METASTASES TO BONE
     Dosage: 120 MILLIGRAM /1.7ML/V
     Route: 042
     Dates: start: 20181228, end: 20181228
  6. TETRAMIDE [Concomitant]
     Active Substance: MIANSERIN
     Dosage: 5 MILLIGRAM, AS DIRECTED
     Route: 065
     Dates: start: 20190110, end: 20190116
  7. ACELIO [Concomitant]
     Active Substance: ACETAMINOPHEN
     Dosage: 750 MILLIGRAM, AS NEEDED
     Route: 065
     Dates: start: 20190112, end: 20190116
  8. TRAMAL [Concomitant]
     Active Substance: TRAMADOL
     Dosage: 25 MILLIGRAM, AS NECESSARY (AS NEEDED)
     Route: 065
     Dates: end: 20190125
  9. CALONAL [Concomitant]
     Active Substance: ACETAMINOPHEN
     Dosage: 1000 MILLIGRAM, TID AFTER EACH MEAL
     Route: 065
     Dates: start: 20190112, end: 20190126
  10. BEVACIZUMAB. [Concomitant]
     Active Substance: BEVACIZUMAB
     Dosage: UNK
  11. SOLDEM 3A [Concomitant]
     Active Substance: CARBOHYDRATES\POTASSIUM CHLORIDE\SODIUM CHLORIDE\SODIUM LACTATE
     Dosage: 500 MILLILITER, QID
     Route: 065
     Dates: start: 20190110, end: 20190128
  12. ZOSYN [Concomitant]
     Active Substance: PIPERACILLIN SODIUM\TAZOBACTAM SODIUM
     Dosage: 4.5 GRAM, TID
     Route: 065
     Dates: start: 20190110, end: 20190117
  13. FLUOROURACIL. [Concomitant]
     Active Substance: FLUOROURACIL
     Dosage: UNK
  14. TAKEPRON [Concomitant]
     Active Substance: LANSOPRAZOLE
     Dosage: 30 MILLIGRAM, BID, ONCE EVERY 12HR
     Route: 065
     Dates: start: 20190110, end: 20190218
  15. OXALIPLATIN. [Concomitant]
     Active Substance: OXALIPLATIN
     Dosage: UNK

REACTIONS (6)
  - Hypocalcaemia [Recovered/Resolved]
  - Enterocolitis [Recovering/Resolving]
  - Diarrhoea [Unknown]
  - Acute kidney injury [Recovering/Resolving]
  - Incorrect route of product administration [Unknown]
  - Vomiting [Unknown]

NARRATIVE: CASE EVENT DATE: 20190109
